FAERS Safety Report 5054396-0 (Version None)
Quarter: 2006Q3

REPORT INFORMATION
  Report Type: 
  Country: None (occurrence: None)
  Receive Date: 20060713
  Receipt Date: 20060630
  Transmission Date: 20061208
  Serious: Yes (Hospitalization, Other)
  Sender: FDA-Public Use
  Company Number: 007755

PATIENT
  Age: 47 Year
  Sex: Female
  Weight: 74.8 kg

DRUGS (6)
  1. KARIVA [Suspect]
     Indication: MENOPAUSAL SYMPTOMS
     Dosage: 1 TABLET, QD, ORAL
     Route: 048
     Dates: start: 20060101, end: 20060502
  2. SOMA [Suspect]
  3. ACIPHEX [Concomitant]
  4. PROZAC [Concomitant]
  5. BUSPAR [Concomitant]
  6. COVERA-HS [Concomitant]

REACTIONS (6)
  - DEEP VEIN THROMBOSIS [None]
  - MUSCULOSKELETAL DISCOMFORT [None]
  - OFF LABEL USE [None]
  - PLEURAL EFFUSION [None]
  - PULMONARY EMBOLISM [None]
  - PULMONARY INFARCTION [None]
